FAERS Safety Report 8859075 (Version 3)
Quarter: 2012Q4

REPORT INFORMATION
  Report Type: 
  Country: JP (occurrence: JP)
  Receive Date: 20121024
  Receipt Date: 20121203
  Transmission Date: 20130627
  Serious: Yes (Other)
  Sender: FDA-Public Use
  Company Number: JP-TEVA-365723USA

PATIENT
  Age: 60 Year
  Sex: Female

DRUGS (2)
  1. TREANDA [Suspect]
     Indication: MANTLE CELL LYMPHOMA
     Dosage: Cyclic
     Route: 042
     Dates: start: 20120919
  2. TREANDA [Suspect]
     Dosage: 2nd cycle
     Dates: start: 20121023, end: 20121024

REACTIONS (1)
  - Erythema multiforme [Recovered/Resolved]
